FAERS Safety Report 9699857 (Version 5)
Quarter: 2014Q2

REPORT INFORMATION
  Report Type: Report from Study
  Country: CA (occurrence: CA)
  Receive Date: 20131121
  Receipt Date: 20140402
  Transmission Date: 20141212
  Serious: Yes (Hospitalization, Other)
  Sender: FDA-Public Use
  Company Number: CA-ROCHE-1306102

PATIENT
  Age: 15 Year
  Sex: Male
  Weight: 38 kg

DRUGS (9)
  1. ACTEMRA [Suspect]
     Indication: JUVENILE IDIOPATHIC ARTHRITIS
     Route: 042
  2. ACTEMRA [Suspect]
     Route: 042
     Dates: start: 20131024
  3. PREDNISONE [Concomitant]
  4. CELEXA (CANADA) [Concomitant]
  5. MORPHINE [Concomitant]
  6. AMLODIPINE [Concomitant]
  7. TYLENOL [Concomitant]
  8. IBUPROFEN [Concomitant]
  9. GABAPENTIN [Concomitant]

REACTIONS (7)
  - Gastroenteritis viral [Unknown]
  - Dehydration [Unknown]
  - Constipation [Recovered/Resolved]
  - Infusion related reaction [Unknown]
  - Hypertension [Unknown]
  - Flushing [Unknown]
  - Tooth disorder [Recovered/Resolved]
